FAERS Safety Report 8046369 (Version 4)
Quarter: 2013Q2

REPORT INFORMATION
  Report Type: Spontaneous
  Country: US (occurrence: US)
  Receive Date: 20110720
  Receipt Date: 20130422
  Transmission Date: 20140414
  Serious: Yes (Disabling, Other)
  Sender: FDA-Public Use
  Company Number: US-ASTRAZENECA-2010SE48061

PATIENT
  Age: 65 Year
  Sex: Male

DRUGS (7)
  1. NEXIUM [Suspect]
     Indication: GASTROOESOPHAGEAL REFLUX DISEASE
     Route: 048
  2. METFORMIN [Concomitant]
  3. INSULIN [Concomitant]
  4. PRAVASTATIN [Concomitant]
  5. BENICAR [Concomitant]
  6. VITAMINS [Concomitant]
  7. IBUPROFEN [Concomitant]

REACTIONS (6)
  - Blindness [Unknown]
  - Eye disorder [Unknown]
  - Insomnia [Unknown]
  - Influenza [Unknown]
  - VIIth nerve paralysis [Unknown]
  - Drug dose omission [Unknown]
